FAERS Safety Report 17892185 (Version 5)
Quarter: 2020Q4

REPORT INFORMATION
  Report Type: Spontaneous
  Country: JP (occurrence: JP)
  Receive Date: 20200612
  Receipt Date: 20201022
  Transmission Date: 20210113
  Serious: Yes (Other)
  Sender: FDA-Public Use
  Company Number: JP-AMGEN-JPNSP2019077869

PATIENT
  Age: 80 Year
  Sex: Male
  Weight: 66.5 kg

DRUGS (13)
  1. EPOETIN ALFA [Concomitant]
     Active Substance: ERYTHROPOIETIN
     Dosage: 3750 INTERNATIONAL UNIT, QWK
     Route: 065
     Dates: start: 20190309
  2. ROCALTROL [Concomitant]
     Active Substance: CALCITRIOL
     Dosage: 0.5 MICROGRAM, 2 TIMES/WK
     Route: 065
     Dates: start: 20200421
  3. CALCIUM CARBONATE. [Concomitant]
     Active Substance: CALCIUM CARBONATE
     Dosage: 1000 MILLIGRAM, QD
     Route: 048
     Dates: start: 20180626, end: 20180821
  4. PARSABIV [Suspect]
     Active Substance: ETELCALCETIDE HYDROCHLORIDE
     Indication: HYPERPARATHYROIDISM SECONDARY
     Dosage: 2.5 MILLIGRAM, 3 TIMES/WK
     Route: 010
     Dates: start: 20180522, end: 20190108
  5. PARSABIV [Suspect]
     Active Substance: ETELCALCETIDE HYDROCHLORIDE
     Dosage: 2.5 MILLIGRAM, 2 TIMES/WK
     Route: 010
     Dates: start: 20190112
  6. CALFINA [ALFACALCIDOL] [Concomitant]
     Active Substance: ALFACALCIDOL
     Dosage: 0.5 MICROGRAM, QD
     Route: 048
     Dates: start: 20180626
  7. CALCIUM CARBONATE. [Concomitant]
     Active Substance: CALCIUM CARBONATE
     Dosage: 500 MILLIGRAM, QD
     Route: 048
     Dates: start: 20180822, end: 20181015
  8. ROCALTROL [Concomitant]
     Active Substance: CALCITRIOL
     Dosage: 0.5 MICROGRAM, 3 TIMES/WK
     Route: 065
     Dates: end: 20200418
  9. RENAGEL [Concomitant]
     Active Substance: SEVELAMER HYDROCHLORIDE
     Dosage: 1500 MILLIGRAM, QD
     Route: 048
  10. EPOETIN ALFA [Concomitant]
     Active Substance: ERYTHROPOIETIN
     Dosage: 1500 INTERNATIONAL UNIT, QWK
     Route: 065
  11. CALFINA [ALFACALCIDOL] [Concomitant]
     Active Substance: ALFACALCIDOL
     Dosage: 0.25 MICROGRAM, QD
     Route: 048
     Dates: end: 20180625
  12. FOSRENOL [Concomitant]
     Active Substance: LANTHANUM CARBONATE
     Dosage: 750 MILLIGRAM, QD
     Route: 048
     Dates: end: 20180917
  13. LANTHANUM CARBONATE. [Concomitant]
     Active Substance: LANTHANUM CARBONATE
     Dosage: 750 MILLIGRAM, QD
     Route: 048
     Dates: start: 20180918

REACTIONS (13)
  - Cataract [Not Recovered/Not Resolved]
  - Pain in extremity [Not Recovered/Not Resolved]
  - Bronchitis [Recovered/Resolved]
  - Headache [Recovered/Resolved]
  - Upper respiratory tract inflammation [Recovered/Resolved]
  - Bronchitis [Recovered/Resolved]
  - Retinal vein occlusion [Not Recovered/Not Resolved]
  - Upper respiratory tract inflammation [Recovered/Resolved]
  - Dermatitis [Recovered/Resolved]
  - Pain [Recovered/Resolved]
  - Meniscus injury [Not Recovered/Not Resolved]
  - Rhinitis allergic [Recovered/Resolved]
  - Influenza [Recovered/Resolved]

NARRATIVE: CASE EVENT DATE: 20180523
